FAERS Safety Report 14288136 (Version 1)
Quarter: 2017Q4

REPORT INFORMATION
  Report Type: Report from Study
  Country: None (occurrence: IL)
  Receive Date: 20171215
  Receipt Date: 20171215
  Transmission Date: 20180321
  Serious: Yes (Death)
  Sender: FDA-Public Use
  Company Number: IL-ABBVIE-17K-082-2193942-00

PATIENT
  Age: 81 Year
  Sex: Male

DRUGS (1)
  1. DUODOPA [Suspect]
     Active Substance: CARBIDOPA\LEVODOPA
     Indication: PARKINSON^S DISEASE
     Dosage: MORNING DOSE 3ML,??CONTINUOUS DOSE 2.6ML/HOUR,??NIGHT DOSE 2,??EXTRA DOSE 0.5ML.
     Route: 050
     Dates: start: 20140816

REACTIONS (4)
  - Dysphagia [Fatal]
  - Cognitive disorder [Fatal]
  - Eye disorder [Fatal]
  - Speech disorder [Fatal]

NARRATIVE: CASE EVENT DATE: 201710
